FAERS Safety Report 21065816 (Version 1)
Quarter: 2022Q3

REPORT INFORMATION
  Report Type: Spontaneous
  Country: US (occurrence: US)
  Receive Date: 20220711
  Receipt Date: 20220711
  Transmission Date: 20221026
  Serious: Yes (Hospitalization)
  Sender: FDA-Public Use
  Company Number: US-PFIZER INC-PV202200019016

PATIENT
  Age: 50 Year
  Sex: Female

DRUGS (2)
  1. MORPHINE SULFATE [Suspect]
     Active Substance: MORPHINE SULFATE
     Dosage: UNK
  2. XTANDI [Suspect]
     Active Substance: ENZALUTAMIDE
     Indication: Breast cancer female
     Dosage: 160 MG, 1X/DAY
     Route: 048
     Dates: start: 20220513

REACTIONS (1)
  - Mental status changes [Unknown]
